FAERS Safety Report 23212471 (Version 1)
Quarter: 2023Q4

REPORT INFORMATION
  Report Type: Spontaneous
  Country: SE (occurrence: SE)
  Receive Date: 20231121
  Receipt Date: 20231121
  Transmission Date: 20240110
  Serious: Yes (Hospitalization)
  Sender: FDA-Public Use
  Company Number: None

PATIENT
  Age: 80 Year
  Sex: Male

DRUGS (3)
  1. ENALAPRIL [Suspect]
     Active Substance: ENALAPRIL
     Indication: Product used for unknown indication
     Route: 065
     Dates: start: 202309
  2. PENICILLIN G [Suspect]
     Active Substance: PENICILLIN G
     Indication: Erysipelas
     Route: 065
  3. PHENOXYMETHYLPENICILLIN CALCIUM [Concomitant]
     Active Substance: PHENOXYMETHYLPENICILLIN CALCIUM
     Indication: Erysipelas

REACTIONS (2)
  - Angioedema [Unknown]
  - Ludwig angina [Unknown]

NARRATIVE: CASE EVENT DATE: 20230901
